FAERS Safety Report 5490831-1 (Version None)
Quarter: 2007Q4

REPORT INFORMATION
  Report Type: 
  Country: None (occurrence: None)
  Receive Date: 20071019
  Receipt Date: 20071009
  Transmission Date: 20080405
  Serious: Yes (Other)
  Sender: FDA-Public Use
  Company Number: TR-ROCHE-524088

PATIENT
  Age: 45 Year
  Sex: Female

DRUGS (2)
  1. PEG-INTERFERON ALFA 2A (RO 25-8310) [Suspect]
     Route: 065
  2. RIBAVIRIN [Suspect]
     Route: 065

REACTIONS (2)
  - PSORIASIS [None]
  - PYODERMA GANGRENOSUM [None]
